FAERS Safety Report 21480756 (Version 2)
Quarter: 2022Q4

REPORT INFORMATION
  Report Type: Report from Study
  Country: US (occurrence: US)
  Receive Date: 20221019
  Receipt Date: 20221128
  Transmission Date: 20230113
  Serious: Yes (Other)
  Sender: FDA-Public Use
  Company Number: US-GW PHARMA-2022-US-032891

PATIENT
  Sex: Female
  Weight: 89.4 kg

DRUGS (1)
  1. EPIDIOLEX [Suspect]
     Active Substance: CANNABIDIOL
     Indication: Product used for unknown indication
     Dosage: 4 MILLILITER EVERY 12 HOURS.
     Route: 048

REACTIONS (4)
  - Brain operation [Unknown]
  - Seizure [Recovered/Resolved]
  - Aura [Unknown]
  - Memory impairment [Unknown]
